FAERS Safety Report 9832626 (Version 2)
Quarter: 2014Q1

REPORT INFORMATION
  Report Type: Spontaneous
  Country: US (occurrence: US)
  Receive Date: 20140121
  Receipt Date: 20140212
  Transmission Date: 20141002
  Serious: No
  Sender: FDA-Public Use
  Company Number: US-009507513-1401USA009422

PATIENT
  Age: 73 Year
  Sex: Female
  Weight: 81.63 kg

DRUGS (1)
  1. OXYTROL FOR WOMEN [Suspect]
     Indication: PRODUCT USED FOR UNKNOWN INDICATION
     Dosage: 1 DF, Q4D
     Route: 062
     Dates: start: 20131212, end: 20131228

REACTIONS (3)
  - Dermatitis contact [Recovered/Resolved]
  - Skin irritation [Unknown]
  - Rash pruritic [Recovered/Resolved]
